FAERS Safety Report 8615725-1 (Version None)
Quarter: 2012Q3

REPORT INFORMATION
  Report Type: 
  Country: None (occurrence: None)
  Receive Date: 20120823
  Receipt Date: 20120814
  Transmission Date: 20120928
  Serious: Yes (Hospitalization, Congenital Anomaly, Other)
  Sender: FDA-Public Use
  Company Number: US-JNJFOC-20120113041

PATIENT
  Sex: Female

DRUGS (13)
  1. LAMICTAL [Suspect]
     Indication: FOETAL EXPOSURE DURING PREGNANCY
     Route: 064
  2. MISOPROSTOL [Suspect]
     Indication: FOETAL EXPOSURE DURING PREGNANCY
     Route: 064
  3. MULTI-VITAMINS [Concomitant]
     Indication: FOETAL EXPOSURE DURING PREGNANCY
     Route: 064
  4. TOPAMAX [Suspect]
     Indication: FOETAL EXPOSURE DURING PREGNANCY
     Route: 064
  5. ACETAMINOPHEN [Suspect]
     Route: 064
  6. ACETAMINOPHEN [Suspect]
     Indication: FOETAL EXPOSURE DURING PREGNANCY
     Route: 064
  7. PHENOBARBITAL TAB [Suspect]
     Indication: FOETAL EXPOSURE DURING PREGNANCY
     Route: 064
  8. LORATADINE [Suspect]
     Indication: FOETAL EXPOSURE DURING PREGNANCY
     Route: 064
  9. BUTORPHANOL TARTRATE [Suspect]
     Indication: FOETAL EXPOSURE DURING PREGNANCY
     Route: 064
  10. FERROUS GLUCONATE [Concomitant]
     Indication: FOETAL EXPOSURE DURING PREGNANCY
     Route: 064
  11. NASONEX [Suspect]
     Indication: FOETAL EXPOSURE DURING PREGNANCY
     Route: 064
  12. PREVACID [Suspect]
     Indication: FOETAL EXPOSURE DURING PREGNANCY
     Route: 064
  13. PROMETHAZINE HCL [Suspect]
     Indication: FOETAL EXPOSURE DURING PREGNANCY
     Route: 064

REACTIONS (6)
  - DEVELOPMENTAL DELAY [None]
  - EMOTIONAL DISORDER [None]
  - NOSE DEFORMITY [None]
  - CARDIAC MURMUR [None]
  - CLEFT LIP AND PALATE [None]
  - HYPERTELORISM OF ORBIT [None]
